FAERS Safety Report 9856714 (Version 1)
Quarter: 2014Q1

REPORT INFORMATION
  Report Type: Spontaneous
  Country: GB (occurrence: None)
  Receive Date: 20140127
  Receipt Date: 20140127
  Transmission Date: 20141002
  Serious: Yes (Other)
  Sender: FDA-Public Use
  Company Number: GB-DEXPHARM-20140009

PATIENT
  Age: 55 Year
  Sex: Male

DRUGS (4)
  1. DICLOFENAC [Suspect]
     Indication: OSTEOARTHRITIS
     Dosage: 3 IN 1 DAYS
     Route: 048
     Dates: start: 20130528, end: 20140106
  2. AMLODIPINE [Concomitant]
  3. EPILIM [Concomitant]
  4. LANSOPRAZOLE [Concomitant]

REACTIONS (2)
  - Angina pectoris [None]
  - Acute myocardial infarction [None]
